FAERS Safety Report 25622702 (Version 1)
Quarter: 2025Q3

REPORT INFORMATION
  Report Type: Spontaneous
  Country: EU (occurrence: EU)
  Receive Date: 20250730
  Receipt Date: 20250730
  Transmission Date: 20251020
  Serious: Yes (Other)
  Sender: TEVA
  Company Number: None

PATIENT
  Age: 29 Year
  Sex: Female

DRUGS (4)
  1. TRAMADOL [Suspect]
     Active Substance: TRAMADOL
     Indication: Product used for unknown indication
     Route: 065
  2. COCAINE [Suspect]
     Active Substance: COCAINE
     Indication: Product used for unknown indication
     Route: 065
  3. COCAINE [Suspect]
     Active Substance: COCAINE
     Indication: Product used for unknown indication
     Route: 065
  4. LEVAMISOLE [Suspect]
     Active Substance: LEVAMISOLE
     Indication: Product used for unknown indication
     Route: 065

REACTIONS (10)
  - Substance use disorder [Unknown]
  - Drug use disorder [Unknown]
  - Vomiting [Unknown]
  - Nausea [Unknown]
  - Hallucination, visual [Unknown]
  - Mydriasis [Unknown]
  - Agitation [Unknown]
  - Tachycardia [Unknown]
  - Hypertension [Unknown]
  - Delusion [Unknown]

NARRATIVE: CASE EVENT DATE: 20250519
